FAERS Safety Report 6668851-0 (Version None)
Quarter: 2010Q2

REPORT INFORMATION
  Report Type: 
  Country: None (occurrence: None)
  Receive Date: 20100406
  Receipt Date: 20100329
  Transmission Date: 20101027
  Serious: Yes (Life-Threatening, Hospitalization)
  Sender: FDA-Public Use
  Company Number: JP-ROCHE-689587

PATIENT
  Sex: Male
  Weight: 40 kg

DRUGS (22)
  1. AVASTIN [Suspect]
     Indication: RECTAL CANCER METASTATIC
     Route: 041
     Dates: start: 20090924, end: 20091125
  2. AVASTIN [Suspect]
     Route: 041
     Dates: start: 20091216, end: 20091216
  3. XELODA [Suspect]
     Indication: RECTAL CANCER METASTATIC
     Dosage: DRUG: XELODA 300.
     Route: 048
     Dates: start: 20091216, end: 20091224
  4. FLUOROURACIL [Concomitant]
     Dosage: ROUTE: INTRAVENOUS BOLUS. NOTE: UNCERTAINTY
     Route: 042
     Dates: start: 20090924, end: 20090924
  5. FLUOROURACIL [Concomitant]
     Dosage: ROUTE: INTRAVENOUS DRIP. NOTE: UNCERTAINTY
     Route: 042
     Dates: start: 20090924, end: 20090925
  6. FLUOROURACIL [Concomitant]
     Dosage: ROUTE: INTRAVENOUS BOLUS. NOTE: UNCERTAINTY
     Route: 042
     Dates: start: 20091025, end: 20091125
  7. FLUOROURACIL [Concomitant]
     Dosage: ROUTE: INTRAVENOUS DRIP. NOTE: UNCERTAINTY
     Route: 042
     Dates: start: 20091025, end: 20091126
  8. ELPLAT [Concomitant]
     Route: 041
     Dates: start: 20091216, end: 20091216
  9. ISOVORIN [Concomitant]
     Route: 041
     Dates: start: 20090924, end: 20090924
  10. ISOVORIN [Concomitant]
     Route: 041
     Dates: start: 20091025, end: 20091125
  11. CAMPTOSAR [Concomitant]
     Route: 041
     Dates: start: 20090924, end: 20090924
  12. CAMPTOSAR [Concomitant]
     Route: 041
     Dates: start: 20091025, end: 20091125
  13. INDISETRON HYDROCHLORIDE [Concomitant]
     Dosage: DRUG REPORTED:SINSERON(INDISETRON HYDROCHLORIDE)
     Route: 048
     Dates: start: 20091216, end: 20091216
  14. VENA [Concomitant]
     Route: 048
     Dates: start: 20091216, end: 20091216
  15. DIOVAN [Concomitant]
     Route: 048
     Dates: start: 20091216, end: 20091224
  16. FAMOTIDINE [Concomitant]
     Route: 048
     Dates: start: 20091216, end: 20091218
  17. SLOW-FE [Concomitant]
     Route: 048
     Dates: start: 20091216, end: 20091224
  18. FASTIC [Concomitant]
     Route: 048
     Dates: start: 20091216, end: 20091224
  19. BASEN [Concomitant]
     Dosage: DRUG REPORTED: BASEN OD
     Route: 048
     Dates: start: 20091216, end: 20091224
  20. JUZENTAIHOTO [Concomitant]
     Dosage: FORM: GRANULATED POWDER
     Route: 048
     Dates: start: 20091216, end: 20091224
  21. PREDNISOLONE [Concomitant]
     Route: 048
     Dates: start: 20091216, end: 20091224
  22. OMEPRAL [Concomitant]
     Dosage: FORM: ENTERIC COATING DRUG.
     Route: 048
     Dates: start: 20091218, end: 20091224

REACTIONS (6)
  - DIARRHOEA [None]
  - HYPERTHERMIA [None]
  - PANCYTOPENIA [None]
  - PNEUMONIA ASPIRATION [None]
  - SMALL INTESTINAL HAEMORRHAGE [None]
  - VOMITING [None]
